FAERS Safety Report 23445125 (Version 2)
Quarter: 2024Q2

REPORT INFORMATION
  Report Type: Spontaneous
  Country: US (occurrence: US)
  Receive Date: 20240125
  Receipt Date: 20240411
  Transmission Date: 20240716
  Serious: No
  Sender: FDA-Public Use
  Company Number: US-OYSTER POINT PHARMA, INC-US-OYS-23-001646

PATIENT
  Age: 76 Year
  Sex: Female
  Weight: 48.53 kg

DRUGS (2)
  1. TYRVAYA [Suspect]
     Active Substance: VARENICLINE TARTRATE
     Indication: Dry eye
     Dosage: 0.03 MILLIGRAM
     Route: 045
  2. TYRVAYA [Suspect]
     Active Substance: VARENICLINE TARTRATE
     Dosage: UNK, BID (TWICE DAILY)
     Route: 045
     Dates: end: 202403

REACTIONS (7)
  - Adverse drug reaction [Recovering/Resolving]
  - Exposure via ingestion [Unknown]
  - Pain in extremity [Unknown]
  - Product delivery mechanism issue [Unknown]
  - Product dose omission issue [Unknown]
  - Product use issue [Unknown]
  - Product use complaint [Unknown]

NARRATIVE: CASE EVENT DATE: 20240301
